FAERS Safety Report 10455605 (Version 1)
Quarter: 2014Q3

REPORT INFORMATION
  Report Type: Spontaneous
  Country: US (occurrence: None)
  Receive Date: 20140818
  Receipt Date: 20140818
  Transmission Date: 20150326
  Serious: Yes (Hospitalization)
  Sender: FDA-Public Use
  Company Number: 20100413VANCO1449

PATIENT
  Age: 42 Year
  Sex: Female
  Weight: 102.06 kg

DRUGS (4)
  1. VANCOCIN [Suspect]
     Active Substance: VANCOMYCIN HYDROCHLORIDE
     Indication: CLOSTRIDIUM DIFFICILE INFECTION
     Dosage: 500 MG (125 MG, 4 IN 1 D)
     Route: 048
     Dates: start: 20100407, end: 20100408
  2. LOMOTIL [Concomitant]
     Active Substance: ATROPINE SULFATE\DIPHENOXYLATE HYDROCHLORIDE
  3. VICODIN [Concomitant]
     Active Substance: ACETAMINOPHEN\HYDROCODONE BITARTRATE
  4. MOTRIN [Concomitant]
     Active Substance: IBUPROFEN

REACTIONS (4)
  - Swelling face [None]
  - Lip swelling [None]
  - Respiratory disorder [None]
  - Drug hypersensitivity [None]

NARRATIVE: CASE EVENT DATE: 20100408
